FAERS Safety Report 24702594 (Version 1)
Quarter: 2024Q4

REPORT INFORMATION
  Report Type: Report from Study
  Country: BE (occurrence: BE)
  Receive Date: 20241205
  Receipt Date: 20241205
  Transmission Date: 20250115
  Serious: Yes (Other)
  Sender: ABBVIE
  Company Number: BE-ABBVIE-6026500

PATIENT
  Age: 92 Year
  Sex: Male

DRUGS (5)
  1. FOSCARBIDOPA\FOSLEVODOPA [Suspect]
     Active Substance: FOSCARBIDOPA\FOSLEVODOPA
     Indication: Parkinson^s disease
     Dosage: LOADING DOSE: 1.20 ML, BASE INFUSION RATE: 0.37 ML/H, EXTRA DOSAGE 0.20 ML, REMAINS AT 24 HRS
     Route: 058
     Dates: start: 20240719, end: 20241014
  2. FOSCARBIDOPA\FOSLEVODOPA [Suspect]
     Active Substance: FOSCARBIDOPA\FOSLEVODOPA
     Dosage: LOADING DOSE: 1.20 ML, BASE INFUSION RATE: 0.37 ML/H, HIGH INFUSION RATE: 0.37 ML/H, LOW INFUSION...
     Route: 058
     Dates: start: 20241014
  3. STALEVO [Concomitant]
     Active Substance: CARBIDOPA\ENTACAPONE\LEVODOPA
     Indication: Parkinson^s disease
     Dosage: 200 OM 7U30/11U/16U?150 AT 8PM
  4. BENSERAZIDE\LEVODOPA [Concomitant]
     Active Substance: BENSERAZIDE\LEVODOPA
     Indication: Product used for unknown indication
     Dosage: HBS 25MG AT 10PM
  5. DONEPEZIL [Concomitant]
     Active Substance: DONEPEZIL
     Indication: Memory impairment
     Route: 048
     Dates: start: 20210701

REACTIONS (5)
  - Rehabilitation therapy [Unknown]
  - Confusional state [Unknown]
  - Injection site inflammation [Unknown]
  - Aggression [Unknown]
  - Injection site infection [Unknown]

NARRATIVE: CASE EVENT DATE: 20240101
